FAERS Safety Report 21052443 (Version 1)
Quarter: 2022Q3

REPORT INFORMATION
  Report Type: Spontaneous
  Country: US (occurrence: US)
  Receive Date: 20220707
  Receipt Date: 20220707
  Transmission Date: 20221027
  Serious: No
  Sender: FDA-Public Use
  Company Number: US-ALKERMES INC.-ALK-2022-003216

PATIENT
  Age: 22 Year
  Sex: Female

DRUGS (2)
  1. LYBALVI [Suspect]
     Active Substance: OLANZAPINE\SAMIDORPHAN L-MALATE
     Indication: Schizoaffective disorder
     Dosage: UNK, QD
     Route: 048
  2. ZYPREXA [Concomitant]
     Active Substance: OLANZAPINE
     Indication: Schizoaffective disorder
     Route: 065

REACTIONS (1)
  - Insomnia [Recovering/Resolving]
